FAERS Safety Report 25383180 (Version 3)
Quarter: 2025Q3

REPORT INFORMATION
  Report Type: Spontaneous
  Country: CN (occurrence: CN)
  Receive Date: 20250602
  Receipt Date: 20250711
  Transmission Date: 20251020
  Serious: Yes (Hospitalization, Other)
  Sender: NOVARTIS
  Company Number: CN-002147023-NVSC2025CN078757

PATIENT
  Age: 74 Year
  Sex: Female
  Weight: 70 kg

DRUGS (12)
  1. TEGRETOL [Suspect]
     Active Substance: CARBAMAZEPINE
     Indication: Trigeminal neuralgia
     Dosage: 1 DOSAGE FORM, BID
     Route: 048
     Dates: start: 202503, end: 20250416
  2. ENTRESTO [Suspect]
     Active Substance: SACUBITRIL\VALSARTAN
     Indication: Hypertension
     Dosage: 1 DOSAGE FORM, BID (ONE TABLET IN THE MORNING, ONE TABLET IN THE EVENING)
     Route: 048
  3. LEVAMLODIPINE BESYLATE [Concomitant]
     Active Substance: LEVAMLODIPINE BESYLATE
     Indication: Blood pressure increased
     Route: 048
  4. Ke Ding [Concomitant]
     Indication: Lipid management
     Route: 065
  5. Ke Ding [Concomitant]
     Indication: Antiplatelet therapy
  6. PLAVIX [Concomitant]
     Active Substance: CLOPIDOGREL BISULFATE
     Indication: Lipid management
     Route: 065
  7. PLAVIX [Concomitant]
     Active Substance: CLOPIDOGREL BISULFATE
     Indication: Antiplatelet therapy
  8. PREDNISONE ACETATE [Concomitant]
     Active Substance: PREDNISONE ACETATE
     Indication: Product used for unknown indication
     Dosage: 20 MG, BID 7 DAYS
     Route: 065
  9. POTASSIUM CHLORIDE [Concomitant]
     Active Substance: POTASSIUM CHLORIDE
     Indication: Product used for unknown indication
     Dosage: 1 G, BID (SUSTAINED-RELEASE TABLETS)
     Route: 048
  10. REBAMIPIDE [Concomitant]
     Active Substance: REBAMIPIDE
     Indication: Product used for unknown indication
     Dosage: 100 MG, TID
     Route: 048
  11. PHOSPHOLIPID [Concomitant]
     Active Substance: PHOSPHOLIPID
     Indication: Product used for unknown indication
     Dosage: 2 DOSAGE FORM, TID
     Route: 048
  12. METFORMIN HYDROCHLORIDE [Concomitant]
     Active Substance: METFORMIN HYDROCHLORIDE
     Indication: Product used for unknown indication
     Dosage: 0.5 G, TID
     Route: 048

REACTIONS (18)
  - Erythema multiforme [Recovering/Resolving]
  - Drug reaction with eosinophilia and systemic symptoms [Recovering/Resolving]
  - Hepatic failure [Recovered/Resolved]
  - Hypokalaemia [Recovering/Resolving]
  - Glucose tolerance impaired [Recovering/Resolving]
  - Hypoproteinaemia [Recovering/Resolving]
  - Sleep disorder [Unknown]
  - Ageusia [Unknown]
  - Muscular weakness [Unknown]
  - Gait disturbance [Unknown]
  - Dizziness [Unknown]
  - Discomfort [Unknown]
  - Palpitations [Unknown]
  - Dyspnoea [Unknown]
  - Chills [Unknown]
  - Feeling jittery [Unknown]
  - Feeling abnormal [Unknown]
  - Hepatic function abnormal [Recovered/Resolved]
